FAERS Safety Report 25975436 (Version 1)
Quarter: 2025Q4

REPORT INFORMATION
  Report Type: Spontaneous
  Country: EU (occurrence: EU)
  Receive Date: 20251029
  Receipt Date: 20251029
  Transmission Date: 20260117
  Serious: Yes (Other)
  Sender: JOHNSON AND JOHNSON
  Company Number: EU-JNJFOC-20251028217

PATIENT
  Age: 76 Year
  Sex: Female
  Weight: 53 kg

DRUGS (7)
  1. INVOKANA [Suspect]
     Active Substance: CANAGLIFLOZIN
     Indication: Type 2 diabetes mellitus
     Route: 048
     Dates: start: 202504, end: 202506
  2. METFORMIN [Concomitant]
     Active Substance: METFORMIN HYDROCHLORIDE
     Indication: Type 2 diabetes mellitus
     Dosage: DAILY DOSAGE(S):100/2000 MG, UNIT DOSE: 50/1000 MG?FREQUENCY: BREAKFAST / DINNER
     Route: 048
  3. BISOPROLOL [Concomitant]
     Active Substance: BISOPROLOL
     Indication: Product used for unknown indication
     Route: 048
  4. FLUOXETINE HYDROCHLORIDE [Concomitant]
     Active Substance: FLUOXETINE HYDROCHLORIDE
     Indication: Product used for unknown indication
  5. BILASTINE [Concomitant]
     Active Substance: BILASTINE
     Indication: Product used for unknown indication
  6. PANTOPRAZOLE [Concomitant]
     Active Substance: PANTOPRAZOLE
     Indication: Product used for unknown indication
     Route: 048
  7. FENOFIBRATE\PRAVASTATIN [Concomitant]
     Active Substance: FENOFIBRATE\PRAVASTATIN
     Indication: Product used for unknown indication

REACTIONS (4)
  - Urinary tract infection [Recovering/Resolving]
  - Weight decreased [Recovering/Resolving]
  - Oral candidiasis [Recovering/Resolving]
  - Tongue oedema [Recovering/Resolving]
